FAERS Safety Report 20145159 (Version 1)
Quarter: 2021Q4

REPORT INFORMATION
  Report Type: Report from Study
  Country: AU (occurrence: None)
  Receive Date: 20211203
  Receipt Date: 20211203
  Transmission Date: 20220303
  Serious: Yes (Other)
  Sender: FDA-Public Use
  Company Number: 2021A847841

PATIENT
  Age: 87 Year
  Sex: Female

DRUGS (9)
  1. ESOMEPRAZOLE [Suspect]
     Active Substance: ESOMEPRAZOLE
     Dosage: 20.0MG UNKNOWN
     Route: 048
  2. INSULIN GLARGINE [Concomitant]
     Active Substance: INSULIN GLARGINE
     Dosage: 22 U
  3. BETAMETHASONE VALERATE [Concomitant]
     Active Substance: BETAMETHASONE VALERATE
     Dosage: 0.02%
  4. CALTRATE [Concomitant]
     Active Substance: CALCIUM CARBONATE
     Dosage: 400 IU
  5. VITAMIN D [Concomitant]
     Active Substance: VITAMIN D NOS
     Dosage: 600MG;400IU
  6. DBL ASPIRIN [Concomitant]
     Dosage: 100.0MG UNKNOWN
  7. LIPITOR [Concomitant]
     Active Substance: ATORVASTATIN CALCIUM
     Dosage: 40.0MG UNKNOWN
  8. POTASSIUM [Concomitant]
     Active Substance: POTASSIUM
     Dosage: 600.0MG UNKNOWN
  9. PROLIA [Concomitant]
     Active Substance: DENOSUMAB
     Dosage: 60.0MG/ML UNKNOWN

REACTIONS (3)
  - Glomerular filtration rate decreased [Unknown]
  - Glycosylated haemoglobin increased [Unknown]
  - Urine albumin/creatinine ratio increased [Unknown]
